FAERS Safety Report 11052343 (Version 2)
Quarter: 2015Q2

REPORT INFORMATION
  Report Type: Report from Study
  Country: DE (occurrence: DE)
  Receive Date: 20150421
  Receipt Date: 20150428
  Transmission Date: 20150821
  Serious: Yes (Death, Hospitalization, Other)
  Sender: FDA-Public Use
  Company Number: PHHY2014DE153293

PATIENT
  Sex: Female
  Weight: 110 kg

DRUGS (4)
  1. PAMIDRONATE [Concomitant]
     Active Substance: PAMIDRONATE DISODIUM
     Indication: PRODUCT USED FOR UNKNOWN INDICATION
     Dosage: UNK, QMO
     Route: 065
     Dates: start: 201404
  2. AFINITOR [Suspect]
     Active Substance: EVEROLIMUS
     Indication: BREAST CANCER METASTATIC
     Dosage: 10 MG, QD
     Route: 048
     Dates: start: 20140606, end: 20140716
  3. EXEMESTANE. [Concomitant]
     Active Substance: EXEMESTANE
     Indication: BREAST CANCER METASTATIC
     Dosage: 25 MG, QD
     Route: 048
     Dates: start: 20140606, end: 20141123
  4. AFINITOR [Suspect]
     Active Substance: EVEROLIMUS
     Dosage: 10 MG, QD
     Route: 048
     Dates: start: 20140731, end: 20140916

REACTIONS (12)
  - Lumbar vertebral fracture [Recovering/Resolving]
  - Weight decreased [Not Recovered/Not Resolved]
  - Malignant neoplasm progression [Fatal]
  - Thoracic vertebral fracture [Recovering/Resolving]
  - Metastases to liver [Fatal]
  - Myelitis transverse [Unknown]
  - Metastases to bone [Fatal]
  - Platelet count decreased [Unknown]
  - Hepatic failure [Fatal]
  - Spinal column stenosis [Unknown]
  - Renal failure [Fatal]
  - Paresis [Recovering/Resolving]

NARRATIVE: CASE EVENT DATE: 201409
